FAERS Safety Report 6458955-X (Version None)
Quarter: 2009Q4

REPORT INFORMATION
  Report Type: 
  Country: None (occurrence: None)
  Receive Date: 20091127
  Receipt Date: 20091116
  Transmission Date: 20100525
  Serious: Yes (Other)
  Sender: FDA-Public Use
  Company Number: US-ELI_LILLY_AND_COMPANY-US200910004279

PATIENT
  Sex: Female
  Weight: 92.063 kg

DRUGS (7)
  1. CYMBALTA [Suspect]
     Indication: HOT FLUSH
     Dosage: 30 MG, UNK
     Dates: start: 20090703, end: 20090714
  2. BYETTA [Concomitant]
     Indication: DIABETES MELLITUS
     Dosage: 5 UG, 2/D
     Route: 065
  3. MICARDIS HCT [Concomitant]
     Indication: HYPERTENSION
     Dosage: UNK, DAILY (1/D)
  4. ALLEGRA [Concomitant]
     Dosage: 60 MG, DAILY (1/D)
     Route: 065
  5. PRAVACHOL [Concomitant]
     Indication: BLOOD CHOLESTEROL DECREASED
     Dosage: 20 MG, DAILY (1/D)
  6. VITAMINS [Concomitant]
     Dosage: UNK, DAILY (1/D)
  7. ASPIRIN CHILDREN [Concomitant]
     Dosage: 81 MG, DAILY (1/D)
     Route: 065

REACTIONS (4)
  - DERMATITIS BULLOUS [None]
  - DRUG WITHDRAWAL SYNDROME [None]
  - EXFOLIATIVE RASH [None]
  - OFF LABEL USE [None]
